FAERS Safety Report 9616395 (Version 1)
Quarter: 2013Q4

REPORT INFORMATION
  Report Type: Spontaneous
  Country: US (occurrence: US)
  Receive Date: 20131011
  Receipt Date: 20131011
  Transmission Date: 20140711
  Serious: No
  Sender: FDA-Public Use
  Company Number: US-PURDUE-USA-2013-0099506

PATIENT
  Age: 70 Year
  Sex: Female

DRUGS (8)
  1. BUTRANS [Suspect]
     Indication: PAIN
     Dosage: 10 MCG/HR, WEEKLY
     Route: 062
     Dates: start: 20130211
  2. CHLORTHALIDONE [Concomitant]
     Indication: FLUID RETENTION
     Dosage: 25 MG, DAILY
     Route: 048
  3. PERCOCET                           /00867901/ [Concomitant]
     Indication: BREAKTHROUGH PAIN
     Dosage: 1-2 TABS, PRN
     Route: 048
  4. LYRICA [Concomitant]
     Indication: PRODUCT USED FOR UNKNOWN INDICATION
     Dosage: 150 MG, DAILY
     Route: 048
  5. LYRICA [Concomitant]
     Dosage: 100 MG, BID
     Route: 048
  6. PREVACID [Concomitant]
     Indication: GASTROOESOPHAGEAL REFLUX DISEASE
     Dosage: 30 MG, DAILY
     Route: 048
  7. BYSTOLIC [Concomitant]
     Indication: BLOOD PRESSURE
     Dosage: 2.5 MG, DAILY
     Route: 048
  8. ATIVAN [Concomitant]
     Indication: PRODUCT USED FOR UNKNOWN INDICATION
     Dosage: 1 MG, PRN
     Route: 048

REACTIONS (5)
  - Oropharyngeal pain [Not Recovered/Not Resolved]
  - Extra dose administered [Recovered/Resolved]
  - Application site pruritus [Not Recovered/Not Resolved]
  - Dry mouth [Not Recovered/Not Resolved]
  - Dry eye [Unknown]
